FAERS Safety Report 6336616-5 (Version None)
Quarter: 2009Q3

REPORT INFORMATION
  Report Type: 
  Country: None (occurrence: None)
  Receive Date: 20090831
  Receipt Date: 20090831
  Transmission Date: 20100115
  Serious: Yes (Hospitalization)
  Sender: FDA-Public Use
  Company Number: None

PATIENT
  Age: 64 Year
  Sex: Male
  Weight: 81 kg

DRUGS (1)
  1. ALLOPURINOL [Suspect]
     Indication: GOUT
     Dosage: 200 MG EVERY DAY PO
     Route: 048
     Dates: start: 20090728, end: 20090815

REACTIONS (8)
  - DERMATITIS EXFOLIATIVE [None]
  - DRUG RASH WITH EOSINOPHILIA AND SYSTEMIC SYMPTOMS [None]
  - FACE OEDEMA [None]
  - HYPOAESTHESIA [None]
  - HYPOTENSION [None]
  - NO THERAPEUTIC RESPONSE [None]
  - PARAESTHESIA [None]
  - RENAL FAILURE [None]
